FAERS Safety Report 8995090 (Version 1)
Quarter: 2013Q1

REPORT INFORMATION
  Report Type: Report from Study
  Country: US (occurrence: US)
  Receive Date: 20130102
  Receipt Date: 20130102
  Transmission Date: 20140127
  Serious: Yes (Life-Threatening, Hospitalization)
  Sender: FDA-Public Use
  Company Number: US-TEVA-378185USA

PATIENT
  Age: 4 Year
  Sex: Female

DRUGS (13)
  1. METHOTREXATE [Suspect]
     Indication: ACUTE LYMPHOCYTIC LEUKAEMIA
     Dosage: 12 MILLIGRAM DAILY;
     Dates: start: 20121114
  2. METHOTREXATE [Suspect]
     Dates: start: 20121001
  3. VINCRISTINE [Suspect]
     Indication: ACUTE LYMPHOCYTIC LEUKAEMIA
     Dosage: .1571 MILLIGRAM DAILY;
     Route: 042
     Dates: start: 20121008, end: 20121030
  4. DASATINIB [Suspect]
     Indication: ACUTE LYMPHOCYTIC LEUKAEMIA
  5. DEXAMETHASONE [Suspect]
     Indication: ACUTE LYMPHOCYTIC LEUKAEMIA
     Dosage: 7.5 MILLIGRAM DAILY;
     Route: 048
     Dates: start: 20121001, end: 20121007
  6. PEGASPARGASE [Suspect]
     Indication: ACUTE LYMPHOCYTIC LEUKAEMIA
     Dosage: 1875 IU (INTERNATIONAL UNIT) DAILY;
     Route: 042
     Dates: start: 20121008, end: 20121008
  7. DOXORUBICIN [Suspect]
     Indication: ACUTE LYMPHOCYTIC LEUKAEMIA
     Dosage: 2.7143 MILLIGRAM DAILY;
     Route: 042
     Dates: start: 20121008
  8. CYCLOPHOSPHAMIDE [Suspect]
     Indication: ACUTE LYMPHOCYTIC LEUKAEMIA
     Dosage: 720 MILLIGRAM DAILY;
     Route: 042
     Dates: start: 20121114
  9. CYTARABINE [Suspect]
     Indication: ACUTE LYMPHOCYTIC LEUKAEMIA
     Dosage: 54 MILLIGRAM DAILY;
     Route: 042
     Dates: start: 20121116
  10. THIOGUANINE [Suspect]
     Indication: ACUTE LYMPHOCYTIC LEUKAEMIA
     Dosage: 60 MILLIGRAM DAILY;
     Route: 048
     Dates: start: 20121127, end: 20121127
  11. THIOGUANINE [Suspect]
     Dosage: 40 MILLIGRAM DAILY;
     Route: 048
     Dates: start: 20121121, end: 20121126
  12. THIOGUANINE [Suspect]
     Dosage: 60 MILLIGRAM DAILY;
     Route: 048
     Dates: start: 20121120, end: 20121120
  13. THIOGUANINE [Suspect]
     Dosage: 40 MILLIGRAM DAILY;
     Route: 048
     Dates: start: 20121114, end: 20121119

REACTIONS (5)
  - Infusion related reaction [Recovered/Resolved]
  - Febrile neutropenia [Recovered/Resolved]
  - Urinary tract infection [Recovered/Resolved]
  - Headache [Recovered/Resolved]
  - Cough [Recovered/Resolved]
